FAERS Safety Report 8055259-9 (Version None)
Quarter: 2012Q1

REPORT INFORMATION
  Report Type: 
  Country: None (occurrence: None)
  Receive Date: 20120119
  Receipt Date: 20120110
  Transmission Date: 20120608
  Serious: Yes (Hospitalization)
  Sender: FDA-Public Use
  Company Number: DE-ASTELLAS-2011EU001743

PATIENT
  Sex: Male

DRUGS (2)
  1. LAMEPIOGIL [Concomitant]
     Indication: EPILEPSY
     Dosage: 75 MG, BID
     Route: 065
     Dates: start: 20100201
  2. TACROLIMUS [Suspect]
     Indication: DERMATITIS ATOPIC
     Dosage: UID/QD
     Route: 065

REACTIONS (1)
  - EPILEPSY [None]
